FAERS Safety Report 23465875 (Version 1)
Quarter: 2024Q1

REPORT INFORMATION
  Report Type: Spontaneous
  Country: US (occurrence: US)
  Receive Date: 20240201
  Receipt Date: 20240201
  Transmission Date: 20240409
  Serious: Yes (Other)
  Sender: FDA-Public Use
  Company Number: US-MYLANLABS-2024M1009833

PATIENT
  Age: 28 Year
  Sex: Female

DRUGS (12)
  1. TOPIRAMATE [Suspect]
     Active Substance: TOPIRAMATE
     Indication: Ear pain
     Dosage: UNK
     Route: 065
  2. TOPIRAMATE [Suspect]
     Active Substance: TOPIRAMATE
     Indication: Dizziness
  3. TOPIRAMATE [Suspect]
     Active Substance: TOPIRAMATE
     Indication: Head discomfort
  4. TOPIRAMATE [Suspect]
     Active Substance: TOPIRAMATE
     Indication: Ear discomfort
  5. ACETAZOLAMIDE [Suspect]
     Active Substance: ACETAZOLAMIDE
     Indication: Ear pain
     Dosage: 250 MILLIGRAM, QD
     Route: 065
  6. ACETAZOLAMIDE [Suspect]
     Active Substance: ACETAZOLAMIDE
     Indication: Dizziness
     Dosage: 500 MILLIGRAM, QD
     Route: 065
  7. ACETAZOLAMIDE [Suspect]
     Active Substance: ACETAZOLAMIDE
     Indication: Head discomfort
  8. ACETAZOLAMIDE [Suspect]
     Active Substance: ACETAZOLAMIDE
     Indication: Ear discomfort
  9. METHAZOLAMIDE [Suspect]
     Active Substance: METHAZOLAMIDE
     Indication: Ear pain
     Dosage: UNK
     Route: 065
  10. METHAZOLAMIDE [Suspect]
     Active Substance: METHAZOLAMIDE
     Indication: Dizziness
  11. METHAZOLAMIDE [Suspect]
     Active Substance: METHAZOLAMIDE
     Indication: Head discomfort
  12. METHAZOLAMIDE [Suspect]
     Active Substance: METHAZOLAMIDE
     Indication: Ear discomfort

REACTIONS (3)
  - Nephrolithiasis [Unknown]
  - Off label use [Unknown]
  - Treatment noncompliance [Unknown]
